FAERS Safety Report 5881456-4 (Version None)
Quarter: 2008Q3

REPORT INFORMATION
  Report Type: 
  Country: None (occurrence: None)
  Receive Date: 20080912
  Receipt Date: 20080702
  Transmission Date: 20090109
  Serious: No
  Sender: FDA-Public Use
  Company Number: US-ABBOTT-08P-163-0460479-00

PATIENT
  Sex: Male

DRUGS (3)
  1. HUMIRA [Suspect]
     Indication: CROHN'S DISEASE
     Route: 058
     Dates: start: 20080101
  2. ENTERCORT EC (ANTI-INFLAMMATORY) [Concomitant]
     Indication: CROHN'S DISEASE
  3. INDURAN [Concomitant]
     Indication: CROHN'S DISEASE

REACTIONS (3)
  - CONTUSION [None]
  - FALL [None]
  - INCREASED TENDENCY TO BRUISE [None]
